FAERS Safety Report 9094903 (Version 1)
Quarter: 2013Q1

REPORT INFORMATION
  Report Type: Spontaneous
  Country: US (occurrence: None)
  Receive Date: 20130214
  Receipt Date: 20130214
  Transmission Date: 20140127
  Serious: Yes (Hospitalization)
  Sender: FDA-Public Use
  Company Number: None

PATIENT
  Age: 1 Month
  Sex: Female
  Weight: 2.4 kg

DRUGS (1)
  1. ERYPED 400 [Suspect]
     Indication: CHLAMYDIAL INFECTION
     Route: 048
     Dates: start: 20130105, end: 20130119

REACTIONS (4)
  - Pyloric stenosis [None]
  - Weight decreased [None]
  - Electrolyte imbalance [None]
  - Blood potassium decreased [None]
